FAERS Safety Report 8101466-6 (Version None)
Quarter: 2012Q1

REPORT INFORMATION
  Report Type: 
  Country: None (occurrence: None)
  Receive Date: 20120129
  Receipt Date: 20111011
  Transmission Date: 20120608
  Serious: No
  Sender: FDA-Public Use
  Company Number: US-ABBOTT-11P-163-0863045-00

PATIENT
  Weight: 36.32 kg

DRUGS (3)
  1. TYLENOL W/ CODEINE [Concomitant]
     Indication: PAIN
  2. TRAMADOL HCL [Concomitant]
     Indication: PAIN
  3. HUMIRA [Suspect]
     Indication: RHEUMATOID ARTHRITIS

REACTIONS (2)
  - RESPIRATORY TRACT INFECTION [None]
  - WEIGHT DECREASED [None]
